FAERS Safety Report 5627238-X (Version None)
Quarter: 2008Q1

REPORT INFORMATION
  Report Type: 
  Country: None (occurrence: None)
  Receive Date: 20080128
  Receipt Date: 20070829
  Transmission Date: 20080703
  Serious: Yes (Hospitalization)
  Sender: FDA-Public Use
  Company Number: CTI_00921_2007

PATIENT
  Sex: Female
  Weight: 106.5953 kg

DRUGS (3)
  1. ZYFLO [Suspect]
     Indication: ASTHMA
     Dosage: DF
     Dates: start: 20060331, end: 20070401
  2. ADVAIR HFA [Concomitant]
  3. PREVACID [Concomitant]

REACTIONS (1)
  - WHITE BLOOD CELL COUNT DECREASED [None]
